FAERS Safety Report 9845015 (Version 1)
Quarter: 2014Q1

REPORT INFORMATION
  Report Type: Spontaneous
  Country: US (occurrence: None)
  Receive Date: 20140123
  Receipt Date: 20140123
  Transmission Date: 20141002
  Serious: Yes (Disabling)
  Sender: FDA-Public Use
  Company Number: None

PATIENT
  Age: 53 Year
  Sex: Female
  Weight: 127.01 kg

DRUGS (1)
  1. LEVOFLOXACIN 500 MG [Suspect]
     Indication: SINUSITIS
     Dosage: 1 PILL  TWICE DAILY TAKEN BY MOUTH
     Route: 048
     Dates: start: 20130512, end: 20130516

REACTIONS (1)
  - Tendonitis [None]
